FAERS Safety Report 18666068 (Version 1)
Quarter: 2020Q4

REPORT INFORMATION
  Report Type: Spontaneous
  Country: FR (occurrence: FR)
  Receive Date: 20201226
  Receipt Date: 20201226
  Transmission Date: 20210114
  Serious: Yes (Other)
  Sender: FDA-Public Use
  Company Number: FR-ALKEM LABORATORIES LIMITED-FR-ALKEM-2020-00428

PATIENT
  Age: 47 Year
  Sex: Male

DRUGS (7)
  1. MYCOPHENOLATE MOFETIL. [Suspect]
     Active Substance: MYCOPHENOLATE MOFETIL
     Dosage: 500 MILLIGRAM, BID, (MAINTENANCE THERAPY)
     Route: 065
     Dates: start: 2015, end: 201705
  2. MYCOPHENOLATE MOFETIL. [Suspect]
     Active Substance: MYCOPHENOLATE MOFETIL
     Indication: IMMUNOSUPPRESSANT DRUG THERAPY
     Dosage: INDUCTION TREATMENT
     Route: 065
     Dates: start: 201504, end: 2015
  3. BELATACEPT [Suspect]
     Active Substance: BELATACEPT
     Indication: IMMUNOSUPPRESSANT DRUG THERAPY
     Dosage: 5 MILLIGRAM/KILOGRAM, (INDUCTION TREATMENT, AT DAY 1, 5, 15, 28 POST?TP)
     Route: 065
     Dates: start: 201504, end: 2015
  4. PREDNISONE. [Suspect]
     Active Substance: PREDNISONE
     Indication: IMMUNOSUPPRESSANT DRUG THERAPY
     Dosage: 10 MILLIGRAM, QD, (MAINTENANCE THERAPY)
     Route: 065
     Dates: start: 2015, end: 201705
  5. THYMOGLOBULIN [Suspect]
     Active Substance: LAPINE T-LYMPHOCYTE IMMUNE GLOBULIN
     Indication: IMMUNOSUPPRESSANT DRUG THERAPY
     Dosage: INDUCTION TREATMENT
     Route: 065
     Dates: start: 201504, end: 2015
  6. BELATACEPT [Suspect]
     Active Substance: BELATACEPT
     Dosage: 5 MILLIGRAM/KILOGRAM, (MAINTENANCE THERAPY)
     Route: 065
     Dates: start: 2015, end: 201705
  7. IMMUNOGLOBULIN (IV IMMUNE GLOBULIN) [Suspect]
     Active Substance: HUMAN IMMUNOGLOBULIN G
     Indication: IMMUNOSUPPRESSANT DRUG THERAPY
     Dosage: 4 DOSAGE FORM, (INDUCTION TREATMENT)
     Route: 042
     Dates: start: 201504, end: 2015

REACTIONS (3)
  - Hepatitis B reactivation [Recovered/Resolved]
  - Hepatitis acute [Recovered/Resolved]
  - Epstein-Barr virus infection [Recovered/Resolved]

NARRATIVE: CASE EVENT DATE: 201705
